FAERS Safety Report 6970963-9 (Version None)
Quarter: 2010Q3

REPORT INFORMATION
  Report Type: 
  Country: None (occurrence: None)
  Receive Date: 20100824
  Receipt Date: 20100506
  Transmission Date: 20110219
  Serious: No
  Sender: FDA-Public Use
  Company Number: 308446

PATIENT
  Age: 58 Year
  Sex: Female
  Weight: 218 kg

DRUGS (3)
  1. VICTOZA [Suspect]
     Indication: TYPE 2 DIABETES MELLITUS
     Dosage: 0.6 MG, SUBCUTANEOUS; 25 U, SUBCUTANEOUS
     Route: 058
     Dates: start: 20100426, end: 20100428
  2. LEVEMIR (INSULIN DETEMIR) SOLUTION FOR INJECTION [Concomitant]
  3. GLYBURIDE (GLIBENICLAMIDE) [Concomitant]

REACTIONS (4)
  - ABDOMINAL PAIN UPPER [None]
  - ACCIDENTAL OVERDOSE [None]
  - LIPASE INCREASED [None]
  - WRONG TECHNIQUE IN DRUG USAGE PROCESS [None]
